FAERS Safety Report 21388732 (Version 1)
Quarter: 2022Q3

REPORT INFORMATION
  Report Type: Spontaneous
  Country: US (occurrence: None)
  Receive Date: 20220927
  Receipt Date: 20220927
  Transmission Date: 20221027
  Serious: Yes (Death)
  Sender: FDA-Public Use
  Company Number: None

PATIENT
  Sex: Male

DRUGS (13)
  1. ARANESP [Suspect]
     Active Substance: DARBEPOETIN ALFA
     Indication: Bladder cancer
     Dosage: 100 MCG/0.5ML??INJECT 100 MG (ONE SYRINGE) UNDER THE SKIN (SUBCUTANEOUS INJECTION) EVERY WEEK ?
     Route: 058
     Dates: start: 20210928
  2. ARANESP [Suspect]
     Active Substance: DARBEPOETIN ALFA
     Dosage: FREQUENCY : WEEKLY;?
     Route: 058
  3. DIFICID [Concomitant]
     Active Substance: FIDAXOMICIN
  4. DRONABINOL [Concomitant]
     Active Substance: DRONABINOL
  5. ERYTHROMYCIN [Concomitant]
  6. FLUCONAZOLE [Concomitant]
     Active Substance: FLUCONAZOLE
  7. FLUOCINONIDE [Concomitant]
     Active Substance: FLUOCINONIDE
  8. MIDODRINE [Concomitant]
     Active Substance: MIDODRINE
  9. ONDASENTRON [Concomitant]
  10. POTASSIUM CHLORIDE [Concomitant]
     Active Substance: POTASSIUM CHLORIDE
  11. PREDNISONE [Concomitant]
     Active Substance: PREDNISONE
  12. PROMETHAZINE [Concomitant]
  13. SERTRALINE [Concomitant]
     Active Substance: SERTRALINE HYDROCHLORIDE

REACTIONS (1)
  - Death [None]

NARRATIVE: CASE EVENT DATE: 20220101
